FAERS Safety Report 5397723-7 (Version None)
Quarter: 2007Q3

REPORT INFORMATION
  Report Type: 
  Country: None (occurrence: None)
  Receive Date: 20070723
  Receipt Date: 20070723
  Transmission Date: 20080115
  Serious: Yes (Other)
  Sender: FDA-Public Use
  Company Number: None

PATIENT
  Age: 36 Year
  Sex: Male
  Weight: 113.3993 kg

DRUGS (1)
  1. BUDEPRION XL TAB  300MG  TEVA PHARMECEUTICALS [Suspect]
     Indication: DEPRESSION
     Dosage: 300MG  1 TABLET DAILY  PO
     Route: 048
     Dates: start: 20070430, end: 20070721

REACTIONS (10)
  - DIABETES MELLITUS [None]
  - DIZZINESS [None]
  - HYPERTENSION [None]
  - IMPAIRED DRIVING ABILITY [None]
  - INSOMNIA [None]
  - LABYRINTHITIS [None]
  - LETHARGY [None]
  - LISTLESS [None]
  - PHARMACEUTICAL PRODUCT COMPLAINT [None]
  - TREMOR [None]
